FAERS Safety Report 6071278-6 (Version None)
Quarter: 2009Q1

REPORT INFORMATION
  Report Type: 
  Country: None (occurrence: None)
  Receive Date: 20090204
  Receipt Date: 20090121
  Transmission Date: 20090719
  Serious: Yes (Hospitalization)
  Sender: FDA-Public Use
  Company Number: DSA_33129_2009

PATIENT
  Sex: Male

DRUGS (7)
  1. DILTIAZEM HYDROCHLORIDE [Suspect]
     Indication: HYPERTENSION
     Dosage: (DF ORAL)
     Route: 048
     Dates: end: 20080215
  2. CORDARONE [Suspect]
     Indication: ARRHYTHMIA
     Dosage: (200 MG QD ORAL)
     Route: 048
     Dates: start: 20080215
  3. ENALAPRIL MALEATE [Suspect]
     Indication: HYPERTENSION
     Dosage: (DF ORAL)
     Route: 048
     Dates: end: 20080220
  4. FUROSEMIDE [Suspect]
     Indication: HYPERTENSION
     Dosage: (DF ORAL)
     Route: 048
  5. GLUCOPHAGE /0082702/ [Concomitant]
  6. ALLOPURINOL [Concomitant]
  7. CLARITIN [Concomitant]

REACTIONS (2)
  - ATRIAL FIBRILLATION [None]
  - RENAL FAILURE ACUTE [None]
